FAERS Safety Report 17110282 (Version 1)
Quarter: 2019Q4

REPORT INFORMATION
  Report Type: Spontaneous
  Country: CA (occurrence: CA)
  Receive Date: 20191204
  Receipt Date: 20191204
  Transmission Date: 20200122
  Serious: Yes (Life-Threatening)
  Sender: FDA-Public Use
  Company Number: CA-PFIZER INC-2019521579

PATIENT
  Age: 65 Year
  Sex: Female

DRUGS (2)
  1. CPD [Suspect]
     Active Substance: ANHYDROUS CITRIC ACID\DEXTROSE MONOHYDRATE\SODIUM PHOSPHATE, MONOBASIC, MONOHYDRATE\TRISODIUM CITRATE DIHYDRATE
     Dosage: UNK
     Route: 042
  2. PHYTOMENADIONE [Suspect]
     Active Substance: PHYTONADIONE
     Dosage: UNK

REACTIONS (5)
  - Blood pressure decreased [Recovered/Resolved]
  - Urticaria [Recovered/Resolved]
  - Dyspnoea [Recovered/Resolved]
  - Anaphylactic shock [Recovered/Resolved]
  - Loss of consciousness [Recovered/Resolved]
